FAERS Safety Report 8577726-1 (Version None)
Quarter: 2012Q3

REPORT INFORMATION
  Report Type: 
  Country: None (occurrence: None)
  Receive Date: 20120808
  Receipt Date: 20120727
  Transmission Date: 20120928
  Serious: Yes (Other)
  Sender: FDA-Public Use
  Company Number: ID-AMGEN-IDNSP2012046728

PATIENT
  Age: 70 Year
  Sex: Female

DRUGS (2)
  1. SULFASALAZINE [Suspect]
     Indication: PRODUCT USED FOR UNKNOWN INDICATION
     Dosage: UNK
     Dates: start: 20120720
  2. ENBREL [Suspect]
     Indication: PRODUCT USED FOR UNKNOWN INDICATION
     Dosage: 50 MG, UNK
     Dates: start: 20120720

REACTIONS (6)
  - STEVENS-JOHNSON SYNDROME [None]
  - ODYNOPHAGIA [None]
  - GASTROINTESTINAL HAEMORRHAGE [None]
  - CHAPPED LIPS [None]
  - MALABSORPTION [None]
  - RASH [None]
